FAERS Safety Report 6595983-8 (Version None)
Quarter: 2010Q1

REPORT INFORMATION
  Report Type: 
  Country: None (occurrence: None)
  Receive Date: 20100223
  Receipt Date: 20100211
  Transmission Date: 20100710
  Serious: Yes (Hospitalization, Other)
  Sender: FDA-Public Use
  Company Number: PHHY2010FR08571

PATIENT
  Sex: Female

DRUGS (7)
  1. NEORAL [Suspect]
     Dosage: 120 MG/ DAY
  2. COLCHIMAX [Interacting]
     Indication: GOUT
     Dosage: UNK
     Route: 048
     Dates: start: 20090401, end: 20090404
  3. BROMAZEPAM [Concomitant]
  4. ALLOPURINOL [Concomitant]
     Dosage: 100 MG, QD
  5. CORGARD [Concomitant]
     Dosage: 80 MG, QD
  6. AMLOR [Concomitant]
     Dosage: 10 MG, QD
  7. STILNOX [Concomitant]
     Dosage: 10 MG, QD

REACTIONS (8)
  - DIARRHOEA [None]
  - DRUG INTERACTION [None]
  - GOUT [None]
  - HYPOKALAEMIA [None]
  - MUSCLE SPASMS [None]
  - MYALGIA [None]
  - PYREXIA [None]
  - RHABDOMYOLYSIS [None]
